FAERS Safety Report 7974652-3 (Version None)
Quarter: 2011Q4

REPORT INFORMATION
  Report Type: 
  Country: None (occurrence: None)
  Receive Date: 20111213
  Receipt Date: 20111205
  Transmission Date: 20120403
  Serious: Yes (Hospitalization, Other)
  Sender: FDA-Public Use
  Company Number: US-ACTELION-A-US2011-49942

PATIENT

DRUGS (7)
  1. SILDENAFIL [Concomitant]
  2. LASIX [Concomitant]
  3. OXYGEN [Concomitant]
  4. EPOPROSTENOL SODIUM [Suspect]
     Dosage: 22 NG/KG, PER MIN
     Route: 042
     Dates: start: 20110106
  5. TRACLEER [Suspect]
     Indication: PULMONARY ARTERIAL HYPERTENSION
     Dosage: UNK
     Route: 048
     Dates: start: 20020115
  6. EPOPROSTENOL SODIUM [Suspect]
     Indication: PULMONARY ARTERIAL HYPERTENSION
     Dosage: 17 NG/KG, PER MIN
     Route: 042
     Dates: start: 20110124
  7. ASPIRIN [Concomitant]

REACTIONS (4)
  - MENTAL DISORDER [None]
  - DEVICE RELATED INFECTION [None]
  - BLOOD CREATININE INCREASED [None]
  - DEVICE LEAKAGE [None]
